FAERS Safety Report 9767914 (Version 3)
Quarter: 2013Q4

REPORT INFORMATION
  Report Type: Spontaneous
  Country: IT (occurrence: IT)
  Receive Date: 20131217
  Receipt Date: 20131226
  Transmission Date: 20140711
  Serious: Yes (Other)
  Sender: FDA-Public Use
  Company Number: PHHY2013IT146472

PATIENT
  Age: 83 Year
  Sex: Female

DRUGS (6)
  1. ZOMETA [Suspect]
     Indication: BLADDER ADENOCARCINOMA STAGE UNSPECIFIED
     Dosage: 4 MG DAILY
     Route: 042
     Dates: start: 20100501, end: 20101001
  2. ZIMOX [Concomitant]
     Dosage: UNK UKN, UNK
     Dates: start: 201209
  3. SERTRALINE [Concomitant]
     Dosage: UNK UKN, UNK
  4. SERETIDE [Concomitant]
     Dosage: UNK UKN, UNK
  5. LEXOTAN [Concomitant]
     Dosage: UNK UKN, UNK
  6. DIFFUMAL [Concomitant]
     Dosage: UNK UKN, UNK

REACTIONS (2)
  - Osteonecrosis of jaw [Recovering/Resolving]
  - Purulent discharge [Recovering/Resolving]
